FAERS Safety Report 6828037-3 (Version None)
Quarter: 2010Q3

REPORT INFORMATION
  Report Type: 
  Country: None (occurrence: None)
  Receive Date: 20100709
  Receipt Date: 20100701
  Transmission Date: 20110219
  Serious: Yes (Hospitalization)
  Sender: FDA-Public Use
  Company Number: B0634958A

PATIENT
  Age: 70 Year
  Sex: Male

DRUGS (5)
  1. AVODART [Suspect]
     Dosage: .5G PER DAY
     Route: 048
     Dates: start: 20070216
  2. TAMSULOSIN HCL [Concomitant]
     Dates: start: 20070216
  3. TICLOPIDINE HYDROCHLORIDE [Concomitant]
     Dates: start: 20070419
  4. DETRUSITOL [Concomitant]
     Dates: start: 20070419
  5. BREXIN [Concomitant]
     Dates: start: 20070803

REACTIONS (1)
  - PULMONARY EMBOLISM [None]
